FAERS Safety Report 8900690 (Version 2)
Quarter: 2012Q4

REPORT INFORMATION
  Report Type: 
  Country: US (occurrence: US)
  Receive Date: 20121109
  Receipt Date: 20121206
  Transmission Date: 20130627
  Serious: Yes (Hospitalization)
  Sender: FDA-Public Use
  Company Number: US-009507513-1211USA001304

PATIENT
  Age: 38 Year
  Sex: Male

DRUGS (1)
  1. ISENTRESS [Suspect]
     Dosage: UNK
     Route: 048
     Dates: end: 201205

REACTIONS (2)
  - Injury [Unknown]
  - Inappropriate schedule of drug administration [Unknown]
